FAERS Safety Report 9215753 (Version 2)
Quarter: 2013Q3

REPORT INFORMATION
  Report Type: Spontaneous
  Country: US (occurrence: US)
  Receive Date: 20130408
  Receipt Date: 20130731
  Transmission Date: 20140515
  Serious: No
  Sender: FDA-Public Use
  Company Number: US-009507513-1303USA013134

PATIENT
  Sex: Female

DRUGS (7)
  1. VICTRELIS [Suspect]
     Indication: CHRONIC HEPATITIS C
     Dosage: 4 DF, TID
     Route: 048
     Dates: start: 201303
  2. VICTRELIS [Suspect]
     Dosage: 4 DF, TID
     Route: 048
     Dates: start: 201306
  3. RIBASPHERE [Suspect]
     Dosage: UNKNOWN
  4. PEGASYS [Suspect]
     Dosage: 180 MICROGRAM, QW
  5. TYLENOL [Concomitant]
     Dosage: 325 MG, PRN
  6. PROCRIT [Concomitant]
     Dosage: 20,000 UNITS
  7. NEUPOGEN [Concomitant]
     Dosage: UNK

REACTIONS (4)
  - Injection site bruising [Unknown]
  - Pain [Unknown]
  - Headache [Unknown]
  - Anxiety [Unknown]
